FAERS Safety Report 20001625 (Version 3)
Quarter: 2022Q1

REPORT INFORMATION
  Report Type: Spontaneous
  Country: JP (occurrence: JP)
  Receive Date: 20211027
  Receipt Date: 20220225
  Transmission Date: 20220423
  Serious: Yes (Other)
  Sender: FDA-Public Use
  Company Number: JP-BAYER-2021A237120

PATIENT
  Age: 41 Year
  Sex: Female

DRUGS (2)
  1. MIRENA [Suspect]
     Active Substance: LEVONORGESTREL
     Indication: Contraception
     Dosage: 20?G/DAY
     Route: 015
     Dates: start: 201506, end: 202005
  2. MIRENA [Suspect]
     Active Substance: LEVONORGESTREL
     Indication: Contraception
     Dosage: 20?G/DAY
     Route: 015
     Dates: start: 202005

REACTIONS (3)
  - Breast cancer female [Recovered/Resolved]
  - Cervix carcinoma stage 0 [None]
  - Ovarian cyst [None]

NARRATIVE: CASE EVENT DATE: 20210601
